FAERS Safety Report 4912486-4 (Version None)
Quarter: 2006Q1

REPORT INFORMATION
  Report Type: 
  Country: None (occurrence: None)
  Receive Date: 20060215
  Receipt Date: 20050510
  Transmission Date: 20060701
  Serious: No
  Sender: FDA-Public Use
  Company Number: US-GLAXOSMITHKLINE-A0557990A

PATIENT
  Age: 37 Year
  Sex: Female

DRUGS (1)
  1. VALACYCLOVIR HCL [Suspect]
     Dosage: 500MG PER DAY
     Route: 048
     Dates: start: 20050504, end: 20050510

REACTIONS (2)
  - BURNING SENSATION [None]
  - HERPES SIMPLEX [None]
